FAERS Safety Report 10159743 (Version 1)
Quarter: 2014Q2

REPORT INFORMATION
  Report Type: Spontaneous
  Country: US (occurrence: US)
  Receive Date: 20140508
  Receipt Date: 20140508
  Transmission Date: 20141212
  Serious: No
  Sender: FDA-Public Use
  Company Number: US-GLAXOSMITHKLINE-A1024433A

PATIENT
  Age: 76 Year
  Sex: Female

DRUGS (7)
  1. TYKERB [Suspect]
     Indication: BREAST CANCER FEMALE
     Dosage: 1250MG PER DAY
     Route: 048
     Dates: start: 20130322, end: 20130505
  2. XELODA [Concomitant]
  3. EXEMESTANE [Concomitant]
  4. LASIX [Concomitant]
  5. METOPROLOL [Concomitant]
  6. LIPITOR [Concomitant]
  7. NOVOLOG [Concomitant]

REACTIONS (3)
  - Swelling face [Unknown]
  - Lip swelling [Unknown]
  - Skin discolouration [Unknown]
